FAERS Safety Report 9312845 (Version 7)
Quarter: 2016Q3

REPORT INFORMATION
  Report Type: Spontaneous
  Country: US (occurrence: US)
  Receive Date: 20130528
  Receipt Date: 20160805
  Transmission Date: 20161109
  Serious: Yes (Hospitalization, Disabling, Other)
  Sender: FDA-Public Use
  Company Number: US-009507513-1305USA012999

PATIENT
  Sex: Male
  Weight: 87.53 kg

DRUGS (2)
  1. PROPECIA [Suspect]
     Active Substance: FINASTERIDE
     Indication: ALOPECIA
     Dosage: 1 MG, QD
     Route: 048
     Dates: start: 20050812, end: 2009
  2. PROPECIA [Suspect]
     Active Substance: FINASTERIDE
     Dosage: 1 MG, QD
     Route: 048
     Dates: start: 2010, end: 2014

REACTIONS (27)
  - Stress [Unknown]
  - Marital problem [Unknown]
  - Ligament sprain [Recovered/Resolved]
  - Attention deficit/hyperactivity disorder [Not Recovered/Not Resolved]
  - Arthralgia [Unknown]
  - Sexual dysfunction [Not Recovered/Not Resolved]
  - Organic erectile dysfunction [Not Recovered/Not Resolved]
  - Ligament rupture [Unknown]
  - Hallucination, visual [Not Recovered/Not Resolved]
  - Headache [Unknown]
  - Diabetes mellitus [Unknown]
  - Schizophrenia [Unknown]
  - Anxiety [Unknown]
  - Joint dislocation [Unknown]
  - Urethritis [Unknown]
  - Insomnia [Not Recovered/Not Resolved]
  - Musculoskeletal chest pain [Recovered/Resolved]
  - Joint stiffness [Unknown]
  - Exposure to communicable disease [Unknown]
  - Bipolar disorder [Unknown]
  - Inguinal hernia [Unknown]
  - Depression [Not Recovered/Not Resolved]
  - Hallucination, auditory [Not Recovered/Not Resolved]
  - Mental disorder [Not Recovered/Not Resolved]
  - Anxiety [Not Recovered/Not Resolved]
  - Fatigue [Unknown]
  - Gonorrhoea [Unknown]

NARRATIVE: CASE EVENT DATE: 2006
